FAERS Safety Report 12850173 (Version 2)
Quarter: 2017Q2

REPORT INFORMATION
  Report Type: Spontaneous
  Country: US (occurrence: US)
  Receive Date: 20161014
  Receipt Date: 20170501
  Transmission Date: 20170830
  Serious: No
  Sender: FDA-Public Use
  Company Number: US-ROCHE-1785037

PATIENT
  Sex: Female

DRUGS (5)
  1. ASPIRIN. [Concomitant]
     Active Substance: ASPIRIN
  2. METOPROLOL. [Concomitant]
     Active Substance: METOPROLOL
  3. ESBRIET [Suspect]
     Active Substance: PIRFENIDONE
     Indication: IDIOPATHIC PULMONARY FIBROSIS
     Route: 048
     Dates: start: 20160504
  4. ESBRIET [Suspect]
     Active Substance: PIRFENIDONE
     Dosage: SHE DROPPED DOWN THE DOSE OF PIRFENIDONE TO TWO TIMES A DAY IN PLACE OF THREE TIMES A DAY
     Route: 048
  5. ATORVASTATIN [Concomitant]
     Active Substance: ATORVASTATIN

REACTIONS (4)
  - Drug dose omission [Unknown]
  - Abdominal discomfort [Unknown]
  - Headache [Unknown]
  - Rash [Unknown]
